FAERS Safety Report 11118145 (Version 1)
Quarter: 2015Q2

REPORT INFORMATION
  Report Type: Spontaneous
  Country: FR (occurrence: FR)
  Receive Date: 20150518
  Receipt Date: 20150518
  Transmission Date: 20150821
  Serious: Yes (Hospitalization)
  Sender: FDA-Public Use
  Company Number: FR-ACCORD-030770

PATIENT
  Age: 67 Year
  Sex: Male

DRUGS (4)
  1. FLUOROURACIL ACCORD [Suspect]
     Active Substance: FLUOROURACIL
     Indication: COLORECTAL CANCER METASTATIC
     Route: 042
     Dates: start: 20140722
  2. CALCIUM LEVOFOLINATE ZENTIVA [Suspect]
     Active Substance: LEVOLEUCOVORIN CALCIUM
     Indication: COLORECTAL CANCER METASTATIC
     Route: 042
     Dates: start: 20140722
  3. AVASTIN [Suspect]
     Active Substance: BEVACIZUMAB
     Indication: COLORECTAL CANCER METASTATIC
     Route: 042
     Dates: start: 20140722
  4. OXALIPLATIN HOSPIRA [Suspect]
     Active Substance: OXALIPLATIN
     Indication: COLORECTAL CANCER METASTATIC
     Route: 042
     Dates: start: 20140722

REACTIONS (3)
  - Neurotoxicity [None]
  - Acute respiratory failure [Recovered/Resolved]
  - Pyrexia [Recovered/Resolved]

NARRATIVE: CASE EVENT DATE: 20150213
